FAERS Safety Report 8523984-9 (Version None)
Quarter: 2012Q3

REPORT INFORMATION
  Report Type: 
  Country: None (occurrence: None)
  Receive Date: 20120720
  Receipt Date: 20120710
  Transmission Date: 20120928
  Serious: Yes (Other)
  Sender: FDA-Public Use
  Company Number: IT-ENDO PHARMACEUTICALS INC.-FRVA20120012

PATIENT
  Age: 37 Year
  Sex: Female

DRUGS (2)
  1. FROVA [Suspect]
     Route: 048
     Dates: start: 20120409, end: 20120409
  2. FROVA [Suspect]
     Indication: HEADACHE
     Route: 048
     Dates: start: 20120330, end: 20120330

REACTIONS (2)
  - MATERNAL EXPOSURE DURING PREGNANCY [None]
  - ABORTION INDUCED [None]
